FAERS Safety Report 9924486 (Version 2)
Quarter: 2014Q2

REPORT INFORMATION
  Report Type: Spontaneous
  Country: GB (occurrence: GB)
  Receive Date: 20140226
  Receipt Date: 20140401
  Transmission Date: 20141212
  Serious: Yes (Other)
  Sender: FDA-Public Use
  Company Number: GB-ASTELLAS-2014EU001472

PATIENT
  Age: 71 Year
  Sex: Male

DRUGS (1)
  1. BETMIGA [Suspect]
     Indication: BLADDER DISORDER
     Dosage: 50 MG, UID/QD
     Route: 048
     Dates: start: 20131223

REACTIONS (2)
  - Off label use [Unknown]
  - Nasopharyngitis [Not Recovered/Not Resolved]
